FAERS Safety Report 18042563 (Version 3)
Quarter: 2020Q4

REPORT INFORMATION
  Report Type: Report from Study
  Country: None (occurrence: CA)
  Receive Date: 20200720
  Receipt Date: 20201124
  Transmission Date: 20210113
  Serious: Yes (Other)
  Sender: FDA-Public Use
  Company Number: CA-ABBVIE-20K-028-3487637-00

PATIENT
  Age: 70 Year
  Sex: Male

DRUGS (3)
  1. RINVOQ [Suspect]
     Active Substance: UPADACITINIB
     Route: 048
     Dates: start: 2020
  2. RINVOQ [Suspect]
     Active Substance: UPADACITINIB
     Indication: RHEUMATOID ARTHRITIS
     Route: 048
     Dates: end: 2020
  3. RINVOQ [Suspect]
     Active Substance: UPADACITINIB
     Route: 048
     Dates: start: 20200804, end: 2020

REACTIONS (10)
  - Pulmonary pain [Unknown]
  - Myocardial infarction [Recovered/Resolved]
  - Myocardial infarction [Unknown]
  - Thrombosis [Unknown]
  - Pain [Unknown]
  - Feeling abnormal [Unknown]
  - Angular cheilitis [Unknown]
  - Arteriosclerosis [Unknown]
  - Angina pectoris [Recovered/Resolved]
  - Dry eye [Unknown]

NARRATIVE: CASE EVENT DATE: 2020
